FAERS Safety Report 7030240-7 (Version None)
Quarter: 2010Q4

REPORT INFORMATION
  Report Type: 
  Country: None (occurrence: None)
  Receive Date: 20101006
  Receipt Date: 20100929
  Transmission Date: 20110411
  Serious: Yes (Other)
  Sender: FDA-Public Use
  Company Number: US-SANOFI-AVENTIS-2010SA048680

PATIENT
  Age: 70 Year
  Sex: Female
  Weight: 103.63 kg

DRUGS (13)
  1. MULTAQ [Suspect]
     Indication: ATRIAL FIBRILLATION
     Route: 048
     Dates: start: 20100521, end: 20100608
  2. BISOPROLOL [Concomitant]
     Indication: HYPERTENSION
     Route: 065
     Dates: start: 20100304
  3. BISOPROLOL [Concomitant]
     Indication: ATRIAL FIBRILLATION
     Route: 065
     Dates: start: 20100304
  4. WARFARIN [Concomitant]
     Indication: ATRIAL FIBRILLATION
     Dates: start: 20091201
  5. ADVAIR DISKUS 100/50 [Concomitant]
     Indication: ASTHMA
     Dosage: ONE PUFF TWICE DAILY; 250/50MG TWICE DAILY
  6. ALBUTEROL [Concomitant]
     Indication: ASTHMA
  7. VITAMIN B-12 [Concomitant]
     Indication: VITAMIN SUPPLEMENTATION
  8. VITAMIN B6 [Concomitant]
     Indication: VITAMIN SUPPLEMENTATION
  9. VITAMIN D [Concomitant]
     Indication: VITAMIN SUPPLEMENTATION
  10. COQ10 [Concomitant]
     Indication: VITAMIN SUPPLEMENTATION
  11. CALCIUM [Concomitant]
     Indication: VITAMIN SUPPLEMENTATION
  12. ZINC [Concomitant]
     Indication: VITAMIN SUPPLEMENTATION
  13. FISH OIL [Concomitant]

REACTIONS (1)
  - ATRIAL FIBRILLATION [None]
